FAERS Safety Report 21698059 (Version 1)
Quarter: 2022Q4

REPORT INFORMATION
  Report Type: Spontaneous
  Country: US (occurrence: US)
  Receive Date: 20221208
  Receipt Date: 20221208
  Transmission Date: 20230113
  Serious: Yes (Other)
  Sender: FDA-Public Use
  Company Number: US-EyePoint Pharmaceuticals, Inc.-US-EYP-21-00149

PATIENT
  Age: 38 Year
  Sex: Female

DRUGS (2)
  1. YUTIQ [Suspect]
     Active Substance: FLUOCINOLONE ACETONIDE
     Indication: Uveitis
     Dosage: ATTEMPTED IN BOTH EYES/OU, IN THE POSTERIOR CHAMBER
     Route: 031
     Dates: start: 20211206
  2. DUREZOL [Concomitant]
     Active Substance: DIFLUPREDNATE
     Indication: Uveitis
     Dosage: 1 DROP BID IN BOTH EYES/OU

REACTIONS (7)
  - Hypotony of eye [Recovered/Resolved]
  - Choroidal detachment [Recovered/Resolved]
  - Visual acuity reduced [Recovered/Resolved]
  - Drug delivery system malfunction [Recovered/Resolved]
  - Eye inflammation [Unknown]
  - Eye pain [Recovered/Resolved]
  - Product dose omission issue [Recovered/Resolved]

NARRATIVE: CASE EVENT DATE: 20211206
